FAERS Safety Report 7803226-X (Version None)
Quarter: 2011Q4

REPORT INFORMATION
  Report Type: 
  Country: None (occurrence: None)
  Receive Date: 20111007
  Receipt Date: 20111005
  Transmission Date: 20120403
  Serious: Yes (Other)
  Sender: FDA-Public Use
  Company Number: CHPA2011CA13685

PATIENT
  Age: 47 Year
  Sex: Female

DRUGS (2)
  1. NICOTINE [Suspect]
     Indication: SMOKING CESSATION THERAPY
     Dosage: 30 MG, QD
     Route: 048
  2. NICOTINE [Suspect]
     Dosage: 10 MG, QD
     Route: 048
     Dates: start: 19940101

REACTIONS (5)
  - OVERDOSE [None]
  - INCORRECT DRUG ADMINISTRATION DURATION [None]
  - TREATMENT NONCOMPLIANCE [None]
  - NICOTINE DEPENDENCE [None]
  - BIPOLAR DISORDER [None]
